FAERS Safety Report 8002615-0 (Version None)
Quarter: 2011Q4

REPORT INFORMATION
  Report Type: 
  Country: None (occurrence: None)
  Receive Date: 20111222
  Receipt Date: 20111220
  Transmission Date: 20120403
  Serious: Yes (Hospitalization)
  Sender: FDA-Public Use
  Company Number: US-GLAXOSMITHKLINE-A0958985A

PATIENT
  Age: 55 Year
  Sex: Female

DRUGS (3)
  1. ADCIRCA [Concomitant]
     Dosage: 40MG PER DAY
  2. LETAIRIS [Concomitant]
     Dosage: 10MG PER DAY
  3. FLOLAN [Suspect]
     Indication: PULMONARY ARTERIAL HYPERTENSION
     Dosage: 52NGKM SEE DOSAGE TEXT
     Route: 042
     Dates: start: 20100311

REACTIONS (1)
  - PLEURAL EFFUSION [None]
